FAERS Safety Report 4837998-3 (Version None)
Quarter: 2005Q4

REPORT INFORMATION
  Report Type: 
  Country: None (occurrence: None)
  Receive Date: 20051123
  Receipt Date: 20051110
  Transmission Date: 20060501
  Serious: Yes (Hospitalization)
  Sender: FDA-Public Use
  Company Number: 2005153885

PATIENT
  Age: 9 Year
  Sex: Female

DRUGS (2)
  1. GENOTROPIN [Suspect]
     Indication: HYPOPITUITARISM
     Dosage: 0.7 M (0.7 MG, 7 INJECTIONS PER WEEK), SUBCUTANEOUS
     Route: 058
     Dates: start: 20050920, end: 20051101
  2. LEVOTHYROXINE SODIUM [Concomitant]

REACTIONS (5)
  - DIPLOPIA [None]
  - HEADACHE [None]
  - PAPILLOEDEMA [None]
  - STRABISMUS [None]
  - VISUAL DISTURBANCE [None]
